FAERS Safety Report 4525598-4 (Version None)
Quarter: 2004Q4

REPORT INFORMATION
  Report Type: 
  Country: None (occurrence: None)
  Receive Date: 20041116
  Receipt Date: 20041005
  Transmission Date: 20050328
  Serious: No
  Sender: FDA-Public Use
  Company Number: S04-USA-06474-01

PATIENT
  Age: 90 Year
  Sex: Female

DRUGS (8)
  1. NAMENDA [Suspect]
     Indication: DEMENTIA ALZHEIMER'S TYPE
     Dosage: 15 MG QD PO
     Route: 048
     Dates: start: 20041003
  2. NAMENDA [Suspect]
     Indication: DEMENTIA ALZHEIMER'S TYPE
     Dosage: 5 MG QD PO
     Route: 048
     Dates: start: 20040919, end: 20040925
  3. NAMENDA [Suspect]
     Indication: DEMENTIA ALZHEIMER'S TYPE
     Dosage: 5 MG BID PO
     Route: 048
     Dates: start: 20040926, end: 20041002
  4. ARICEPT [Concomitant]
  5. SINEMET [Concomitant]
  6. NITROGLYCERIN [Concomitant]
  7. INDERAL ^WYETH-AYERST^ (PROPANOLOL HYDROCHLORIDE) [Concomitant]
  8. CARDIZEM [Concomitant]

REACTIONS (1)
  - ASTHENIA [None]
